FAERS Safety Report 23840275 (Version 1)
Quarter: 2024Q2

REPORT INFORMATION
  Report Type: Spontaneous
  Country: SA (occurrence: SA)
  Receive Date: 20240510
  Receipt Date: 20240510
  Transmission Date: 20240716
  Serious: Yes (Other)
  Sender: FDA-Public Use
  Company Number: SA-SUN PHARMACEUTICAL INDUSTRIES LTD-2024RR-445351

PATIENT
  Age: 12 Month
  Sex: Female

DRUGS (5)
  1. MEROPENEM [Suspect]
     Active Substance: MEROPENEM
     Indication: Urinary tract infection
     Dosage: 20 MG/KG EVERY 8 H
     Route: 040
  2. VANCOMYCIN [Concomitant]
     Active Substance: VANCOMYCIN
     Indication: Product used for unknown indication
     Dosage: (15MG/KG EVERY 6 H
     Route: 040
  3. ASPIRIN [Concomitant]
     Active Substance: ASPIRIN
     Indication: Urinary tract infection
     Dosage: 5 MG/KG EVERY OTHER DAY
     Route: 040
  4. FERROUS SULFATE [Concomitant]
     Active Substance: FERROUS SULFATE
     Indication: Haemoglobin
     Dosage: UNK
     Route: 065
  5. trimethoprim?sulfamethoxazole [Concomitant]
     Indication: Prophylaxis
     Dosage: 2 MG/KG ONCE DAILY
     Route: 048

REACTIONS (2)
  - Drug ineffective [Unknown]
  - Condition aggravated [Unknown]
